FAERS Safety Report 9716928 (Version 3)
Quarter: 2015Q3

REPORT INFORMATION
  Report Type: Spontaneous
  Country: US (occurrence: US)
  Receive Date: 20131127
  Receipt Date: 20150803
  Transmission Date: 20151125
  Serious: No
  Sender: FDA-Public Use
  Company Number: US-GILEAD-2009-0019874

PATIENT
  Age: 56 Year
  Sex: Male
  Weight: 71.67 kg

DRUGS (14)
  1. LETAIRIS [Suspect]
     Active Substance: AMBRISENTAN
     Indication: PULMONARY ARTERIAL HYPERTENSION
     Route: 048
     Dates: start: 200812, end: 200901
  2. XANAX [Concomitant]
     Active Substance: ALPRAZOLAM
  3. ASPIRIN CHEWABLE [Concomitant]
     Active Substance: ASPIRIN
  4. TENORMIN [Concomitant]
     Active Substance: ATENOLOL
  5. DULCOLAX [Concomitant]
     Active Substance: BISACODYL OR DOCUSATE SODIUM
  6. RAMIPRIL. [Concomitant]
     Active Substance: RAMIPRIL
  7. NEXIUM [Concomitant]
     Active Substance: ESOMEPRAZOLE MAGNESIUM
  8. HIDEWAY OXYGEN SYSTEM [Concomitant]
  9. VITAMIN C [Concomitant]
     Active Substance: ASCORBIC ACID
  10. AMLODIPINE BESYLATE. [Concomitant]
     Active Substance: AMLODIPINE BESYLATE
  11. ZINC [Concomitant]
     Active Substance: ZINC\ZINC CHLORIDE
  12. CELEXA [Concomitant]
     Active Substance: CITALOPRAM HYDROBROMIDE
  13. VYTORIN [Concomitant]
     Active Substance: EZETIMIBE\SIMVASTATIN
  14. PLAVIX [Concomitant]
     Active Substance: CLOPIDOGREL BISULFATE

REACTIONS (4)
  - Dyspnoea [Unknown]
  - Night sweats [Unknown]
  - Gastrointestinal motility disorder [Unknown]
  - Peripheral swelling [Unknown]
